FAERS Safety Report 11693628 (Version 1)
Quarter: 2015Q4

REPORT INFORMATION
  Report Type: Spontaneous
  Country: ZA (occurrence: ZA)
  Receive Date: 20151103
  Receipt Date: 20151103
  Transmission Date: 20160304
  Serious: Yes (Other)
  Sender: FDA-Public Use
  Company Number: ZA-PFIZER INC-2015359399

PATIENT
  Age: 50 Year
  Sex: Male

DRUGS (3)
  1. SUTENT [Suspect]
     Active Substance: SUNITINIB MALATE
     Indication: METASTATIC RENAL CELL CARCINOMA
     Dosage: 50 MG, 4WEEKS ON AND 2WEEKS OFF
     Route: 048
     Dates: start: 20141021
  2. BONDRONAT /01304701/ [Concomitant]
     Active Substance: IBANDRONIC ACID
     Dosage: UNK
     Route: 048
     Dates: start: 201410
  3. EUTHYROX [Concomitant]
     Active Substance: LEVOTHYROXINE SODIUM
     Dosage: 25 MG, DAILY
     Route: 048
     Dates: start: 20150828

REACTIONS (6)
  - Syncope [Unknown]
  - Hypothyroidism [Recovered/Resolved]
  - Nausea [Recovered/Resolved]
  - Mallory-Weiss syndrome [Unknown]
  - Fatigue [Recovering/Resolving]
  - Gastrointestinal haemorrhage [Unknown]
